FAERS Safety Report 8074756-3 (Version None)
Quarter: 2012Q1

REPORT INFORMATION
  Report Type: 
  Country: None (occurrence: None)
  Receive Date: 20120126
  Receipt Date: 20120120
  Transmission Date: 20120608
  Serious: Yes (Death, Hospitalization, Other)
  Sender: FDA-Public Use
  Company Number: US-GILEAD-2011-0046221

PATIENT
  Sex: Female

DRUGS (17)
  1. FLOVENT HFA [Concomitant]
  2. ZOSTAVAX [Concomitant]
  3. LEFLUNOMIDE [Concomitant]
  4. SYNTHROID [Concomitant]
  5. ACETAMINOPHEN W/ CODEINE [Concomitant]
  6. REVATIO [Concomitant]
  7. NASONEX [Concomitant]
  8. FOLIC ACID [Concomitant]
  9. HYDROXYCHLOROQUINE SULFATE [Concomitant]
  10. ALBUTEROL SULFATE [Concomitant]
  11. CITRACAL [Concomitant]
  12. IBUPROFEN (ADVIL) [Concomitant]
  13. LETAIRIS [Suspect]
     Indication: PULMONARY HYPERTENSION
     Dosage: 5 MG, UNK
     Route: 048
     Dates: start: 20090831, end: 20111010
  14. GLUCOSAMINE CHONDROITIN [Concomitant]
  15. PREDNISONE TAB [Concomitant]
  16. LASIX [Concomitant]
  17. METHOTREXATE [Suspect]

REACTIONS (3)
  - CARDIAC FAILURE [None]
  - RIGHT VENTRICULAR DYSFUNCTION [None]
  - PULMONARY FIBROSIS [None]
